FAERS Safety Report 4699552-6 (Version None)
Quarter: 2005Q2

REPORT INFORMATION
  Report Type: 
  Country: None (occurrence: None)
  Receive Date: 20050622
  Receipt Date: 20050609
  Transmission Date: 20051028
  Serious: Yes (Hospitalization, Other)
  Sender: FDA-Public Use
  Company Number: HQWYE022131MAY05

PATIENT
  Age: 24 Year
  Sex: Female

DRUGS (2)
  1. VENLAFAXINE HCL [Suspect]
     Dosage: ^SIX TBL^ (OVERDOSE AMOUNT), ORAL
     Route: 048
     Dates: start: 20050527, end: 20050527
  2. ALPRAZOLAM [Suspect]
     Dosage: 25-30 ^TBL^ (OVEDOSE AMOUNT)

REACTIONS (6)
  - ABNORMAL BEHAVIOUR [None]
  - INTENTIONAL MISUSE [None]
  - MULTIPLE DRUG OVERDOSE [None]
  - MYDRIASIS [None]
  - SOMNOLENCE [None]
  - SUICIDE ATTEMPT [None]
